FAERS Safety Report 6593146-3 (Version None)
Quarter: 2010Q1

REPORT INFORMATION
  Report Type: 
  Country: None (occurrence: None)
  Receive Date: 20100222
  Receipt Date: 20100209
  Transmission Date: 20100710
  Serious: Yes (Other)
  Sender: FDA-Public Use
  Company Number: PHHY2010BR07673

PATIENT
  Sex: Female

DRUGS (2)
  1. DIOVAN HCT [Suspect]
     Indication: BLOOD PRESSURE
     Dosage: 1 TABLET (160/12.5 MG) A DAY, IN THE MORNING
     Route: 048
     Dates: start: 20090101
  2. AMLODIPINE BESILATE/ ATENOLOL [Concomitant]
     Indication: BLOOD PRESSURE
     Dosage: 1 TABLET (5/25 MG) A DAY
     Route: 048

REACTIONS (3)
  - BLOOD PRESSURE INADEQUATELY CONTROLLED [None]
  - HYPERTENSION [None]
  - MYOMECTOMY [None]
